FAERS Safety Report 17855781 (Version 1)
Quarter: 2020Q2

REPORT INFORMATION
  Report Type: Spontaneous
  Country: CA (occurrence: CA)
  Receive Date: 20200603
  Receipt Date: 20200603
  Transmission Date: 20200714
  Serious: Yes (Other)
  Sender: FDA-Public Use
  Company Number: CA-ROCHE-2610040

PATIENT
  Age: 68 Year
  Sex: Female

DRUGS (5)
  1. SYNTHROID [Concomitant]
     Active Substance: LEVOTHYROXINE SODIUM
  2. HEPATITIS A VACCINE NOS [Suspect]
     Active Substance: HEPATITIS A VACCINE, INACTIVATED
     Indication: PRODUCT USED FOR UNKNOWN INDICATION
     Route: 065
  3. IBUPROFEN. [Concomitant]
     Active Substance: IBUPROFEN
  4. FLUDARABINE PHOSPHATE. [Suspect]
     Active Substance: FLUDARABINE PHOSPHATE
     Indication: PRODUCT USED FOR UNKNOWN INDICATION
     Dosage: THERAPY DURATION: 244.0 DAYS
     Route: 065
  5. RITUXIMAB. [Suspect]
     Active Substance: RITUXIMAB
     Indication: AUTOIMMUNE HAEMOLYTIC ANAEMIA
     Dosage: THERAPY DURATION: 244.0 DAYS
     Route: 065

REACTIONS (3)
  - Off label use [Unknown]
  - Autoimmune haemolytic anaemia [Unknown]
  - Rash pruritic [Unknown]
